FAERS Safety Report 7427798-2 (Version None)
Quarter: 2011Q2

REPORT INFORMATION
  Report Type: 
  Country: None (occurrence: None)
  Receive Date: 20110421
  Receipt Date: 20110413
  Transmission Date: 20111010
  Serious: Yes (Other)
  Sender: FDA-Public Use
  Company Number: US-ASTRAZENECA-2009UW14353

PATIENT
  Age: 54 Year
  Sex: Female
  Weight: 63.6 kg

DRUGS (22)
  1. SEROQUEL [Suspect]
     Dosage: 100 MG TO 300 MG
     Route: 048
     Dates: start: 20070705
  2. SEROQUEL [Suspect]
     Dosage: 100-300MG
     Route: 048
     Dates: start: 20080716
  3. PRILOSEC [Concomitant]
     Route: 048
     Dates: start: 20090101
  4. PREMARIN [Concomitant]
     Route: 048
     Dates: start: 20070705
  5. LISINOPRIL AND HYDROCHLOROTHIAZIDE [Concomitant]
     Dosage: 10/12
     Dates: start: 20080715
  6. POTASSIUM [Concomitant]
     Dates: start: 20080715
  7. GEODON [Concomitant]
     Dates: start: 20080715
  8. CIPRO [Concomitant]
     Dosage: 500
     Dates: start: 20080715
  9. SINGULAIR [Concomitant]
     Dosage: 10 MG
     Dates: start: 20080715
  10. CYMBALTA [Concomitant]
     Dates: start: 20080715
  11. ALPRAZOLAM [Concomitant]
     Dates: start: 20080715
  12. ALPRAZOLAM [Concomitant]
     Dates: start: 20090101
  13. OXYBUTYNIN [Concomitant]
     Route: 048
     Dates: start: 20070717
  14. DIAZEPAM [Concomitant]
     Dates: start: 20080715
  15. REGLAN [Concomitant]
     Dosage: 10 OR 5 MG
     Dates: start: 20080715
  16. FLEXERIL [Concomitant]
     Dosage: 5
     Dates: start: 20080715
  17. NAPROXEN [Concomitant]
     Dates: start: 20080715
  18. FIORINAL [Concomitant]
     Dates: start: 20080715
  19. SEROQUEL [Suspect]
     Route: 048
     Dates: start: 20060101
  20. NEURONTIN [Concomitant]
     Dates: start: 20080715
  21. FUROSEMIDE [Concomitant]
     Dates: start: 20080715
  22. CLONAZEPAM [Concomitant]
     Dates: start: 20080715

REACTIONS (2)
  - NEUROPATHY PERIPHERAL [None]
  - TYPE 2 DIABETES MELLITUS [None]
